FAERS Safety Report 12660603 (Version 1)
Quarter: 2016Q3

REPORT INFORMATION
  Report Type: Spontaneous
  Country: None (occurrence: US)
  Receive Date: 20160817
  Receipt Date: 20160817
  Transmission Date: 20161109
  Serious: No
  Sender: FDA-Public Use
  Company Number: US-MERZ NORTH AMERICA, INC.-16MRZ-00487

PATIENT
  Age: 59 Year
  Sex: Male

DRUGS (1)
  1. XEOMIN [Suspect]
     Active Substance: INCOBOTULINUMTOXINA

REACTIONS (9)
  - Loss of consciousness [Unknown]
  - Cough [Unknown]
  - Chills [Unknown]
  - Vertigo [Unknown]
  - Tremor [Unknown]
  - Pain [Unknown]
  - Dyspnoea [Unknown]
  - Disorientation [Unknown]
  - Abdominal pain upper [Unknown]
